FAERS Safety Report 5068817-0 (Version None)
Quarter: 2006Q3

REPORT INFORMATION
  Report Type: 
  Country: None (occurrence: None)
  Receive Date: 20060802
  Receipt Date: 20060413
  Transmission Date: 20061208
  Serious: No
  Sender: FDA-Public Use
  Company Number: US-BRISTOL-MYERS SQUIBB COMPANY-13346416

PATIENT
  Age: 74 Year
  Sex: Male

DRUGS (3)
  1. COUMADIN [Suspect]
     Indication: ATRIAL FIBRILLATION
     Dates: start: 20030101
  2. WARFARIN SODIUM [Interacting]
     Indication: ATRIAL FIBRILLATION
     Dates: start: 20030101
  3. TAGAMET [Interacting]
     Dates: end: 20060120

REACTIONS (5)
  - ABDOMINAL PAIN UPPER [None]
  - DIARRHOEA [None]
  - DRUG INTERACTION [None]
  - FAECES DISCOLOURED [None]
  - PRURITUS [None]
